FAERS Safety Report 6823912-8 (Version None)
Quarter: 2010Q3

REPORT INFORMATION
  Report Type: 
  Country: None (occurrence: None)
  Receive Date: 20100708
  Receipt Date: 20061211
  Transmission Date: 20110219
  Serious: No
  Sender: FDA-Public Use
  Company Number: US-PFIZER INC-2006117579

PATIENT
  Age: 67 Year
  Sex: Male
  Weight: 99.79 kg

DRUGS (2)
  1. VARENICLINE [Suspect]
     Indication: SMOKING CESSATION THERAPY
     Dates: start: 20060908, end: 20060910
  2. LISINOPRIL [Concomitant]

REACTIONS (2)
  - INSOMNIA [None]
  - SLEEP DISORDER [None]
